FAERS Safety Report 9816136 (Version 2)
Quarter: 2014Q1

REPORT INFORMATION
  Report Type: Spontaneous
  Country: US (occurrence: US)
  Receive Date: 20140114
  Receipt Date: 20140304
  Transmission Date: 20141002
  Serious: Yes (Hospitalization, Other)
  Sender: FDA-Public Use
  Company Number: US-PFIZER INC-2014010214

PATIENT
  Age: 31 Year
  Sex: Female
  Weight: 67.12 kg

DRUGS (5)
  1. LYRICA [Suspect]
     Indication: NEURALGIA
     Dosage: 200 MG, 2X/DAY
     Route: 048
  2. LYRICA [Suspect]
     Dosage: 200 MG, 3X/DAY
     Route: 048
     Dates: end: 2012
  3. LYRICA [Suspect]
     Dosage: 200 MG, 2X/DAY
     Route: 048
     Dates: start: 2012, end: 201401
  4. XANAX [Concomitant]
     Dosage: UNK
  5. HYDROCODONE [Concomitant]
     Dosage: UNK

REACTIONS (3)
  - Road traffic accident [Unknown]
  - Head injury [Unknown]
  - Weight increased [Unknown]
